FAERS Safety Report 11202616 (Version 1)
Quarter: 2015Q2

REPORT INFORMATION
  Report Type: Spontaneous
  Country: US (occurrence: None)
  Receive Date: 20150617
  Receipt Date: 20150617
  Transmission Date: 20150821
  Serious: Yes (Life-Threatening, Hospitalization)
  Sender: FDA-Public Use
  Company Number: None

PATIENT
  Age: 65 Year
  Sex: Male
  Weight: 120.4 kg

DRUGS (2)
  1. WARFARIN [Suspect]
     Active Substance: WARFARIN
     Indication: ATRIAL FIBRILLATION
     Route: 048
     Dates: start: 20131007, end: 20131011
  2. ENOXAPARIN (GENERIC) [Suspect]
     Active Substance: ENOXAPARIN
     Dates: start: 20131008, end: 20131010

REACTIONS (5)
  - Abdominal wall haematoma [None]
  - Shock haemorrhagic [None]
  - Respiratory failure [None]
  - Dizziness [None]
  - Syncope [None]

NARRATIVE: CASE EVENT DATE: 20131011
